FAERS Safety Report 5139461-1 (Version None)
Quarter: 2006Q4

REPORT INFORMATION
  Report Type: 
  Country: None (occurrence: None)
  Receive Date: 20061024
  Receipt Date: 20060830
  Transmission Date: 20070319
  Serious: Yes (Other)
  Sender: FDA-Public Use
  Company Number: 2006106005

PATIENT
  Sex: Female
  Weight: 73.9363 kg

DRUGS (11)
  1. ZOLOFT [Suspect]
     Indication: DEPRESSION
     Dosage: 25 MG (25 MG, 1 IN 1 D)
     Dates: start: 20040601
  2. ARICEPT [Concomitant]
  3. ANDION (BECLOMETASONE DIPROPIONATE) [Concomitant]
  4. ACIPHEX [Concomitant]
  5. TOPROL-XL [Concomitant]
  6. XALATAN [Concomitant]
  7. LIPITOR [Concomitant]
  8. CELEBREX [Concomitant]
  9. ALL OTHER THERAPEUTIC PRODUCTS (ALL OTHER THERAPEUTIC PRODUCTS) [Concomitant]
  10. ALBUTEROL [Concomitant]
  11. FLEXERIL [Concomitant]

REACTIONS (1)
  - DRUG INEFFECTIVE [None]
